FAERS Safety Report 13510731 (Version 1)
Quarter: 2017Q2

REPORT INFORMATION
  Report Type: Spontaneous
  Country: US (occurrence: US)
  Receive Date: 20170503
  Receipt Date: 20170503
  Transmission Date: 20170830
  Serious: No
  Sender: FDA-Public Use
  Company Number: US-BAYER-2017-083381

PATIENT
  Age: 25 Year
  Sex: Female
  Weight: 68.03 kg

DRUGS (2)
  1. MIDOL [Suspect]
     Active Substance: IBUPROFEN
     Indication: PAIN
     Dosage: UNK (ONE TIME ONLY, 5 YEARS AGO)
     Route: 048
  2. MIDOL EXTENDED RELIEF [Suspect]
     Active Substance: NAPROXEN SODIUM
     Indication: PAIN
     Dosage: UNK (5 YEARS AGO)
     Route: 048

REACTIONS (9)
  - Euphoric mood [Recovered/Resolved]
  - Feeling abnormal [Recovered/Resolved]
  - Tremor [Recovered/Resolved]
  - Tremor [Recovered/Resolved]
  - Euphoric mood [Recovered/Resolved]
  - Asthenia [Recovered/Resolved]
  - Wrong technique in product usage process [Unknown]
  - Feeling abnormal [Recovered/Resolved]
  - Asthenia [None]

NARRATIVE: CASE EVENT DATE: 20170429
